FAERS Safety Report 8169658-8 (Version None)
Quarter: 2012Q1

REPORT INFORMATION
  Report Type: 
  Country: None (occurrence: None)
  Receive Date: 20120228
  Receipt Date: 20120226
  Transmission Date: 20120608
  Serious: Yes (Other)
  Sender: FDA-Public Use
  Company Number: US-PFIZER INC-2012050344

PATIENT
  Sex: Female

DRUGS (2)
  1. CHANTIX [Suspect]
     Dosage: UNK
     Route: 048
     Dates: start: 20120201
  2. CHANTIX [Suspect]
     Dosage: UNK
     Route: 048
     Dates: start: 20120201, end: 20120201

REACTIONS (5)
  - VOMITING [None]
  - MUSCULOSKELETAL PAIN [None]
  - HYPERHIDROSIS [None]
  - FEELING COLD [None]
  - CHEST PAIN [None]
